FAERS Safety Report 7060360-2 (Version None)
Quarter: 2010Q4

REPORT INFORMATION
  Report Type: 
  Country: None (occurrence: None)
  Receive Date: 20101025
  Receipt Date: 20101014
  Transmission Date: 20110411
  Serious: Yes (Hospitalization)
  Sender: FDA-Public Use
  Company Number: B0680532A

PATIENT
  Age: 32 Year
  Sex: Male

DRUGS (2)
  1. TYKERB [Suspect]
     Dosage: 1250MG PER DAY
     Route: 065
  2. CAPECITABINE [Suspect]
     Dosage: 2000MGM2 PER DAY
     Route: 065

REACTIONS (3)
  - ARTERIOSPASM CORONARY [None]
  - CHEST PAIN [None]
  - PAIN [None]
